FAERS Safety Report 23241796 (Version 3)
Quarter: 2024Q3

REPORT INFORMATION
  Report Type: Report from Study
  Country: US (occurrence: US)
  Receive Date: 20231129
  Receipt Date: 20240716
  Transmission Date: 20241017
  Serious: Yes (Other)
  Sender: AURINIA PHARMACEUTICALS
  Company Number: US-OTSUKA PHARMACEUTICAL NETHERLANDS B.V.-AUR-004343

PATIENT
  Age: 71 Year
  Sex: Female

DRUGS (3)
  1. LUPKYNIS [Suspect]
     Active Substance: VOCLOSPORIN
     Indication: Lupus nephritis
     Dosage: 7.9 MILLIGRAM, BID
     Route: 048
     Dates: start: 20220901
  2. LUPKYNIS [Suspect]
     Active Substance: VOCLOSPORIN
     Dosage: 2 CAPSULES AT NIGHT 1 IN THE MORNING
     Route: 048
  3. LUPKYNIS [Suspect]
     Active Substance: VOCLOSPORIN
     Dosage: 23.7 MILLIGRAM, BID
     Route: 048
     Dates: start: 20230128

REACTIONS (12)
  - Pneumonia [Unknown]
  - Lung neoplasm malignant [Not Recovered/Not Resolved]
  - Glaucoma [Unknown]
  - Systemic lupus erythematosus [Not Recovered/Not Resolved]
  - Nasopharyngitis [Unknown]
  - Muscular weakness [Unknown]
  - Joint injury [Unknown]
  - Aortic valve disease [Not Recovered/Not Resolved]
  - Functional gastrointestinal disorder [Unknown]
  - Malaise [Unknown]
  - Cardiomegaly [Unknown]
  - Abdominal discomfort [Unknown]

NARRATIVE: CASE EVENT DATE: 20231016
